FAERS Safety Report 6478922-X (Version None)
Quarter: 2009Q4

REPORT INFORMATION
  Report Type: 
  Country: None (occurrence: None)
  Receive Date: 20091207
  Receipt Date: 20091130
  Transmission Date: 20100525
  Serious: Yes (Hospitalization, Other)
  Sender: FDA-Public Use
  Company Number: CA-ELI_LILLY_AND_COMPANY-CA200910001982

PATIENT
  Age: 92 Year
  Sex: Female

DRUGS (3)
  1. FORTEO [Suspect]
     Indication: OSTEOPOROSIS
     Dosage: 20 UG, DAILY (1/D)
     Route: 058
     Dates: start: 20090422, end: 20090921
  2. MORPHINE [Concomitant]
     Route: 048
     Dates: end: 20090101
  3. MORPHINE [Concomitant]
     Route: 062
     Dates: start: 20090101

REACTIONS (1)
  - CONVULSION [None]
